FAERS Safety Report 5314695-1 (Version None)
Quarter: 2007Q2

REPORT INFORMATION
  Report Type: 
  Country: None (occurrence: None)
  Receive Date: 20070426
  Receipt Date: 20070412
  Transmission Date: 20071010
  Serious: Yes (Hospitalization)
  Sender: FDA-Public Use
  Company Number: SPV1-2007-02103

PATIENT
  Age: 26 Year
  Sex: Male
  Weight: 72.6 kg

DRUGS (1)
  1. 381 (ADDERALL XR) (AMPHETAMINE ASPARTATE, AMPHETAMINE SULFATE, DEXTROA [Suspect]
     Indication: ATTENTION DEFICIT/HYPERACTIVITY DISORDER
     Dosage: 25 MG, 1X/DAY, QD
     Dates: start: 20050201, end: 20070301

REACTIONS (6)
  - ATTENTION DEFICIT/HYPERACTIVITY DISORDER [None]
  - CONDITION AGGRAVATED [None]
  - INSOMNIA [None]
  - INTERVERTEBRAL DISC DISORDER [None]
  - NARCOLEPSY [None]
  - SOMNOLENCE [None]
